FAERS Safety Report 13337828 (Version 1)
Quarter: 2017Q1

REPORT INFORMATION
  Report Type: Spontaneous
  Country: JP (occurrence: JP)
  Receive Date: 20170315
  Receipt Date: 20170315
  Transmission Date: 20170428
  Serious: Yes (Hospitalization)
  Sender: FDA-Public Use
  Company Number: JP-ELI_LILLY_AND_COMPANY-JP201703002371

PATIENT
  Age: 77 Year
  Sex: Male
  Weight: 60 kg

DRUGS (6)
  1. 5-FU                               /00098801/ [Concomitant]
     Active Substance: FLUOROURACIL
     Indication: RECTAL ADENOCARCINOMA
     Dosage: UNK
     Route: 042
     Dates: start: 201511, end: 201512
  2. LEUCOVORIN                         /00566702/ [Concomitant]
     Active Substance: LEUCOVORIN
     Indication: RECTAL ADENOCARCINOMA
     Dosage: UNK
     Route: 042
     Dates: start: 201511, end: 201512
  3. LEUCOVORIN                         /00566702/ [Concomitant]
     Active Substance: LEUCOVORIN
     Dosage: 325 MG, UNK
     Route: 042
     Dates: start: 20170124, end: 20170224
  4. 5-FU                               /00098801/ [Concomitant]
     Active Substance: FLUOROURACIL
     Dosage: 3200 MG, UNK
     Route: 042
     Dates: start: 20170124, end: 20170224
  5. IRINOTECAN HYDROCHLORIDE. [Concomitant]
     Active Substance: IRINOTECAN HYDROCHLORIDE
     Indication: RECTAL ADENOCARCINOMA
     Dosage: 120 MG/M2, UNK
     Route: 042
     Dates: start: 20170124, end: 20170224
  6. CYRAMZA [Suspect]
     Active Substance: RAMUCIRUMAB
     Indication: RECTAL ADENOCARCINOMA
     Dosage: 8 MG/KG, UNK
     Route: 042
     Dates: start: 20170124, end: 20170224

REACTIONS (2)
  - Neutrophil count decreased [Unknown]
  - Pulmonary oedema [Recovered/Resolved]

NARRATIVE: CASE EVENT DATE: 20170224
